FAERS Safety Report 13707199 (Version 1)
Quarter: 2017Q2

REPORT INFORMATION
  Report Type: Spontaneous
  Country: US (occurrence: US)
  Receive Date: 20170630
  Receipt Date: 20170630
  Transmission Date: 20170830
  Serious: Yes (Other)
  Sender: FDA-Public Use
  Company Number: US-PFIZER INC-2017283290

PATIENT

DRUGS (1)
  1. IBRANCE [Suspect]
     Active Substance: PALBOCICLIB

REACTIONS (4)
  - Anaemia [Recovered/Resolved]
  - Performance status decreased [Recovered/Resolved]
  - Weight decreased [Recovered/Resolved]
  - Renal impairment [Recovered/Resolved]
